FAERS Safety Report 8161887-2 (Version None)
Quarter: 2012Q1

REPORT INFORMATION
  Report Type: 
  Country: None (occurrence: None)
  Receive Date: 20120224
  Receipt Date: 20111028
  Transmission Date: 20120608
  Serious: No
  Sender: FDA-Public Use
  Company Number: US-BRISTOL-MYERS SQUIBB COMPANY-16206757

PATIENT
  Age: 69 Year
  Sex: Male

DRUGS (3)
  1. GLIPIZIDE [Suspect]
  2. LANTUS [Suspect]
     Indication: TYPE 2 DIABETES MELLITUS
     Dosage: 1DF:16UNITS PARENTRAL INJECTION SOLUTION 100IU/ML
     Route: 058
     Dates: start: 20100101
  3. METFORMIN HCL [Suspect]

REACTIONS (4)
  - INJECTION SITE HAEMORRHAGE [None]
  - BLOOD GLUCOSE INCREASED [None]
  - INJECTION SITE PAIN [None]
  - INCORRECT ROUTE OF DRUG ADMINISTRATION [None]
